FAERS Safety Report 7387323-1 (Version None)
Quarter: 2011Q1

REPORT INFORMATION
  Report Type: 
  Country: None (occurrence: None)
  Receive Date: 20110331
  Receipt Date: 20110328
  Transmission Date: 20110831
  Serious: Yes (Death)
  Sender: FDA-Public Use
  Company Number: BE-BRISTOL-MYERS SQUIBB COMPANY-15241482

PATIENT
  Age: 68 Year
  Sex: Male
  Weight: 70 kg

DRUGS (13)
  1. CETUXIMAB [Suspect]
     Indication: HEAD AND NECK CANCER
     Dosage: LOADING DOSE ON DAY 1 OF 1 CYCLE,LAST DOSE ON 2AUG10 250 MG/M2 WEEKLY IV-ONG
     Route: 042
     Dates: start: 20100407
  2. VITAMIN B-12 [Concomitant]
  3. LYSOMUCIL [Concomitant]
     Dates: start: 20100325
  4. DEXAMETHASONE [Concomitant]
  5. ZANTAC [Concomitant]
     Dates: start: 20100325
  6. FRAXIPARINE [Concomitant]
     Dates: start: 20100629
  7. FOLIC ACID [Concomitant]
  8. MINOCYCLINE [Concomitant]
     Indication: RASH
     Dates: start: 20100421
  9. CISPLATIN [Suspect]
     Indication: HEAD AND NECK CANCER
     Dosage: DAY 1 EVERY 21 DAYS.LAST DOSE ON 27JUL10
     Route: 042
     Dates: start: 20100407
  10. MOTILIUM [Concomitant]
     Dates: start: 20100603
  11. PEMETREXED DISODIUM [Suspect]
     Indication: HEAD AND NECK CANCER
     Dosage: DAY 1 EVERY 21 DAYS.LAST DOSE ON 27JUL10
     Route: 042
     Dates: start: 20100407
  12. TERRAMYCIN V CAP [Concomitant]
     Indication: EYE INFECTION
     Dates: start: 20100723
  13. ATROVENT [Concomitant]
     Dates: start: 20100527

REACTIONS (29)
  - SEPTIC SHOCK [None]
  - NEUTROPENIA [None]
  - ASPIRATION [None]
  - HAEMATOCRIT DECREASED [None]
  - WHITE BLOOD CELL COUNT DECREASED [None]
  - METASTASES TO LUNG [None]
  - ATELECTASIS [None]
  - HAEMATURIA [None]
  - BLOOD MAGNESIUM DECREASED [None]
  - C-REACTIVE PROTEIN INCREASED [None]
  - AORTIC ANEURYSM [None]
  - BRONCHOPNEUMONIA [None]
  - BLOOD UREA INCREASED [None]
  - BLOOD CALCIUM DECREASED [None]
  - HAEMOGLOBIN DECREASED [None]
  - BLOOD SODIUM DECREASED [None]
  - THROMBOCYTOPENIA [None]
  - LUNG INFECTION [None]
  - RED CELL DISTRIBUTION WIDTH INCREASED [None]
  - NEPHROANGIOSCLEROSIS [None]
  - RED BLOOD CELL COUNT DECREASED [None]
  - TUMOUR NECROSIS [None]
  - RESPIRATORY FAILURE [None]
  - BLOOD POTASSIUM DECREASED [None]
  - LUNG NEOPLASM [None]
  - ARTERIOSCLEROSIS CORONARY ARTERY [None]
  - MYOCARDIAL ISCHAEMIA [None]
  - AORTIC ARTERIOSCLEROSIS [None]
  - RENAL TUBULAR NECROSIS [None]
